FAERS Safety Report 24131521 (Version 2)
Quarter: 2024Q3

REPORT INFORMATION
  Report Type: Spontaneous
  Country: GB (occurrence: GB)
  Receive Date: 20240724
  Receipt Date: 20240831
  Transmission Date: 20241016
  Serious: Yes (Hospitalization)
  Sender: LEADING PHARMA
  Company Number: GB-LEADINGPHARMA-GB-2024LEALIT00313

PATIENT
  Age: 15 Year
  Sex: Male

DRUGS (5)
  1. LORAZEPAM [Suspect]
     Active Substance: LORAZEPAM
     Indication: Autism spectrum disorder
     Route: 065
     Dates: start: 20230710
  2. LORAZEPAM [Suspect]
     Active Substance: LORAZEPAM
     Indication: Catatonia
     Route: 065
     Dates: start: 20231006
  3. RISPERIDONE [Concomitant]
     Active Substance: RISPERIDONE
     Indication: Autism spectrum disorder
     Route: 065
  4. RISPERIDONE [Concomitant]
     Active Substance: RISPERIDONE
  5. SERTRALINE [Concomitant]
     Active Substance: SERTRALINE HYDROCHLORIDE
     Indication: Anxiety
     Route: 065

REACTIONS (4)
  - Sexually inappropriate behaviour [Recovered/Resolved]
  - Paradoxical drug reaction [Unknown]
  - Aggression [Recovered/Resolved]
  - Product use in unapproved indication [Unknown]
